FAERS Safety Report 9251049 (Version 1)
Quarter: 2013Q1

REPORT INFORMATION
  Report Type: Spontaneous
  Country: US (occurrence: None)
  Receive Date: 20130305
  Receipt Date: 20130305
  Transmission Date: 20140127
  Serious: Yes (Hospitalization)
  Sender: FDA-Public Use
  Company Number: 163-21880-12090104

PATIENT
  Age: 62 Year
  Sex: Male

DRUGS (12)
  1. REVLIMID [Suspect]
     Indication: PLASMA CELL MYELOMA
     Dosage: 25 MG, 14 IN 14 D, PO
     Route: 048
     Dates: start: 20120608, end: 20120827
  2. SENNA [Concomitant]
  3. LACTULOSE (LACTULOSE) [Concomitant]
  4. MS CONTIN [Concomitant]
  5. OMEPRAZOLE (OMEPRAZOLE) [Concomitant]
  6. MSIR (MORPHINE SULFATE) [Concomitant]
  7. MEGACE (MEGESTROL ACETATE) [Concomitant]
  8. BACTRIM DS (BACTRIM) [Concomitant]
  9. LOVENOX (HEPARIN-FRACTION, SODIUM SALT) [Concomitant]
  10. ACYCLOVIR (ACICLOVIR) [Concomitant]
  11. MIRALAX [Concomitant]
  12. ZOCOR (SIMVASTATIN) [Concomitant]

REACTIONS (3)
  - Pleural effusion [None]
  - Pulmonary embolism [None]
  - Haemoglobin decreased [None]
